FAERS Safety Report 5012760-X (Version None)
Quarter: 2006Q2

REPORT INFORMATION
  Report Type: 
  Country: None (occurrence: None)
  Receive Date: 20060530
  Receipt Date: 20060207
  Transmission Date: 20061013
  Serious: No
  Sender: FDA-Public Use
  Company Number: US-BRISTOL-MYERS SQUIBB COMPANY-13274469

PATIENT
  Age: 55 Year
  Sex: Female
  Weight: 91 kg

DRUGS (9)
  1. ERBITUX [Suspect]
     Indication: COLON CANCER
     Route: 042
     Dates: start: 20050301
  2. BENADRYL [Concomitant]
     Indication: PREMEDICATION
     Route: 042
  3. ZOLOFT [Concomitant]
  4. COUMADIN [Concomitant]
  5. ZOFRAN [Concomitant]
  6. LOMOTIL [Concomitant]
  7. RESTORIL [Concomitant]
  8. PERCOCET [Concomitant]
  9. IMODIUM [Concomitant]

REACTIONS (1)
  - NAIL INFECTION [None]
